FAERS Safety Report 20752818 (Version 1)
Quarter: 2022Q2

REPORT INFORMATION
  Report Type: Spontaneous
  Country: US (occurrence: None)
  Receive Date: 20220426
  Receipt Date: 20220426
  Transmission Date: 20220721
  Serious: No
  Sender: FDA-Public Use
  Company Number: US-ROCHE-2871559

PATIENT
  Age: 70 Year
  Sex: Male

DRUGS (4)
  1. ESBRIET [Suspect]
     Active Substance: PIRFENIDONE
     Indication: Idiopathic pulmonary fibrosis
     Dosage: THREE TIMES A DAY ;ONGOING: NO
     Route: 048
     Dates: start: 202104, end: 202105
  2. ESBRIET [Suspect]
     Active Substance: PIRFENIDONE
     Dosage: THREE TIMES A DAY ;ONGOING: NO
     Route: 048
     Dates: start: 202105
  3. ESBRIET [Suspect]
     Active Substance: PIRFENIDONE
     Dosage: THREE TIMES A DAY ;ONGOING: NO
     Route: 048
     Dates: start: 202106
  4. ESBRIET [Suspect]
     Active Substance: PIRFENIDONE
     Dosage: THREE TIMES A DAY ;ONGOING: YES
     Route: 048

REACTIONS (6)
  - Photosensitivity reaction [Recovering/Resolving]
  - Diarrhoea [Recovered/Resolved]
  - Cough [Recovering/Resolving]
  - Pain [Recovered/Resolved]
  - Hepatic enzyme increased [Recovering/Resolving]
  - Insomnia [Unknown]

NARRATIVE: CASE EVENT DATE: 20210401
